FAERS Safety Report 13831744 (Version 1)
Quarter: 2017Q3

REPORT INFORMATION
  Report Type: Spontaneous
  Country: US (occurrence: US)
  Receive Date: 20170803
  Receipt Date: 20170803
  Transmission Date: 20171127
  Serious: No
  Sender: FDA-Public Use
  Company Number: US-ROCHE-675156

PATIENT
  Age: 55 Year
  Sex: Female
  Weight: 54.4 kg

DRUGS (3)
  1. BONIVA [Suspect]
     Active Substance: IBANDRONATE SODIUM
     Indication: OSTEOPOROSIS
     Route: 048
     Dates: start: 200901, end: 200906
  2. CALCIUM [Concomitant]
     Active Substance: CALCIUM
     Route: 065
  3. BONIVA [Suspect]
     Active Substance: IBANDRONATE SODIUM
     Indication: OSTEOPOROSIS
     Dosage: FORM: INJECTION
     Route: 065
     Dates: start: 200906, end: 20091208

REACTIONS (10)
  - Gastrooesophageal reflux disease [Unknown]
  - Pruritus [Unknown]
  - Dyspepsia [Unknown]
  - Influenza like illness [Unknown]
  - Abdominal pain [Unknown]
  - Rash papular [Unknown]
  - Rash [Unknown]
  - Lip swelling [Unknown]
  - Urticaria [Unknown]
  - Throat tightness [Unknown]

NARRATIVE: CASE EVENT DATE: 20091208
